FAERS Safety Report 16878099 (Version 2)
Quarter: 2020Q1

REPORT INFORMATION
  Report Type: Spontaneous
  Country: FR (occurrence: FR)
  Receive Date: 20191002
  Receipt Date: 20200313
  Transmission Date: 20200409
  Serious: Yes (Other)
  Sender: FDA-Public Use
  Company Number: FR-JNJFOC-20190931502

PATIENT
  Sex: Male

DRUGS (6)
  1. XEPLION [Suspect]
     Active Substance: PALIPERIDONE PALMITATE
     Indication: SCHIZOAFFECTIVE DISORDER
     Route: 030
     Dates: start: 2019
  2. DEPAKOTE [Concomitant]
     Active Substance: DIVALPROEX SODIUM
  3. XEPLION [Suspect]
     Active Substance: PALIPERIDONE PALMITATE
     Dosage: STARTED A WEEK AGO
     Route: 030
     Dates: start: 202002
  4. SERESTA [Concomitant]
     Active Substance: OXAZEPAM
  5. XEPLION [Suspect]
     Active Substance: PALIPERIDONE PALMITATE
     Route: 030
     Dates: start: 2019
  6. TERCIAN                            /00759301/ [Concomitant]
     Active Substance: CYAMEMAZINE
     Indication: ANXIETY

REACTIONS (4)
  - Tachycardia [Unknown]
  - Oedema peripheral [Unknown]
  - Lumbar spinal stenosis [Unknown]
  - Parkinsonian gait [Unknown]
